FAERS Safety Report 16959019 (Version 1)
Quarter: 2019Q4

REPORT INFORMATION
  Report Type: Spontaneous
  Country: US (occurrence: US)
  Receive Date: 20191024
  Receipt Date: 20191024
  Transmission Date: 20200122
  Serious: No
  Sender: FDA-Public Use
  Company Number: US-ROCHE-2225686

PATIENT
  Age: 39 Year
  Sex: Male

DRUGS (1)
  1. COTELLIC [Suspect]
     Active Substance: COBIMETINIB
     Indication: LANGERHANS^ CELL HISTIOCYTOSIS
     Dosage: 20 MG, ONGOING: YES
     Route: 048
     Dates: start: 201811

REACTIONS (3)
  - Intentional product use issue [Unknown]
  - Off label use [Unknown]
  - Diarrhoea [Unknown]

NARRATIVE: CASE EVENT DATE: 20190425
